FAERS Safety Report 9210383 (Version 2)
Quarter: 2013Q2

REPORT INFORMATION
  Report Type: Spontaneous
  Country: US (occurrence: US)
  Receive Date: 20130404
  Receipt Date: 20130607
  Transmission Date: 20140414
  Serious: No
  Sender: FDA-Public Use
  Company Number: US-BAYER-2013-041869

PATIENT
  Sex: Female
  Weight: 102.95 kg

DRUGS (6)
  1. BETASERON [Suspect]
     Dosage: 0.25 MG, QOD
     Route: 058
  2. CENTRUM [Concomitant]
  3. AMPYRA [Suspect]
     Dosage: 10 MG, UNK
  4. AMPYRA [Suspect]
  5. MULTIVITAMIN [Concomitant]
  6. B12-VITAMIN [Concomitant]
     Dosage: 1 MG, UNK

REACTIONS (1)
  - Palpitations [Unknown]
